FAERS Safety Report 12380399 (Version 1)
Quarter: 2016Q2

REPORT INFORMATION
  Report Type: Spontaneous
  Country: US (occurrence: None)
  Receive Date: 20160516
  Receipt Date: 20160516
  Transmission Date: 20160815
  Serious: Yes (Hospitalization)
  Sender: FDA-Public Use
  Company Number: None

PATIENT
  Age: 74 Year
  Sex: Male
  Weight: 111.4 kg

DRUGS (1)
  1. WARFARIN [Suspect]
     Active Substance: WARFARIN
     Dates: start: 20160111

REACTIONS (10)
  - Rectal haemorrhage [None]
  - International normalised ratio increased [None]
  - Constipation [None]
  - Colitis [None]
  - Dehydration [None]
  - Leukocytosis [None]
  - Memory impairment [None]
  - Coagulopathy [None]
  - Hypokalaemia [None]
  - Cardiomegaly [None]

NARRATIVE: CASE EVENT DATE: 20160111
